FAERS Safety Report 21452071 (Version 6)
Quarter: 2023Q1

REPORT INFORMATION
  Report Type: Spontaneous
  Country: US (occurrence: US)
  Receive Date: 20221013
  Receipt Date: 20230306
  Transmission Date: 20230418
  Serious: Yes (Other)
  Sender: FDA-Public Use
  Company Number: US-EXELIXIS-CABO-22055837

PATIENT
  Age: 16 Year
  Sex: Female

DRUGS (13)
  1. OPDIVO [Suspect]
     Active Substance: NIVOLUMAB
     Indication: Bone cancer
     Dates: start: 20220914
  2. OPDIVO [Suspect]
     Active Substance: NIVOLUMAB
     Indication: Chondrosarcoma
  3. CABOMETYX [Suspect]
     Active Substance: CABOZANTINIB S-MALATE
     Indication: Bone cancer
  4. CABOMETYX [Suspect]
     Active Substance: CABOZANTINIB S-MALATE
     Indication: Chondrosarcoma
     Dosage: 40 MG, QD
     Dates: start: 20220914, end: 20221023
  5. CABOMETYX [Suspect]
     Active Substance: CABOZANTINIB S-MALATE
     Dosage: 40 MG, QD
     Dates: start: 20221105
  6. CABOMETYX [Suspect]
     Active Substance: CABOZANTINIB S-MALATE
  7. BACTRIM [Concomitant]
     Active Substance: SULFAMETHOXAZOLE\TRIMETHOPRIM
     Indication: Product used for unknown indication
  8. CYPROHEPTADINE [Concomitant]
     Active Substance: CYPROHEPTADINE
     Indication: Product used for unknown indication
     Dosage: UNK
  9. CYPROHEPTADINE [Concomitant]
     Active Substance: CYPROHEPTADINE
  10. LOESTRIN NOS [Concomitant]
     Active Substance: ETHINYL ESTRADIOL\NORETHINDRONE ACETATE
     Indication: Product used for unknown indication
  11. OXYCODONE [Concomitant]
     Active Substance: OXYCODONE
     Indication: Product used for unknown indication
     Dosage: UNK
  12. PHOSPHORUS [Concomitant]
     Active Substance: PHOSPHORUS
     Indication: Product used for unknown indication
  13. PREDNISONE [Concomitant]
     Active Substance: PREDNISONE
     Indication: Product used for unknown indication

REACTIONS (9)
  - Erythema [Not Recovered/Not Resolved]
  - Skin ulcer [Not Recovered/Not Resolved]
  - Vertebral lesion [Recovering/Resolving]
  - Neutrophil count increased [Not Recovered/Not Resolved]
  - Blood pressure increased [Recovering/Resolving]
  - Off label use [Unknown]
  - Flatulence [Recovering/Resolving]
  - Vomiting [Unknown]
  - Pneumonia fungal [Unknown]

NARRATIVE: CASE EVENT DATE: 20220101
